FAERS Safety Report 8322785-4 (Version None)
Quarter: 2012Q2

REPORT INFORMATION
  Report Type: 
  Country: None (occurrence: None)
  Receive Date: 20120430
  Receipt Date: 20120420
  Transmission Date: 20120825
  Serious: Yes (Other)
  Sender: FDA-Public Use
  Company Number: US-ASTRAZENECA-2012SE07697

PATIENT
  Age: 46 Year
  Sex: Male

DRUGS (1)
  1. NEXIUM [Suspect]
     Route: 048

REACTIONS (20)
  - BASAL CELL CARCINOMA [None]
  - HEPATIC CYST [None]
  - COLON ADENOMA [None]
  - NECK MASS [None]
  - RECTAL POLYP [None]
  - SYNCOPE [None]
  - DECREASED APPETITE [None]
  - OESOPHAGEAL CANDIDIASIS [None]
  - DIZZINESS [None]
  - ABDOMINAL PAIN [None]
  - RECTAL HAEMORRHAGE [None]
  - GASTROOESOPHAGEAL REFLUX DISEASE [None]
  - LYMPHADENOPATHY [None]
  - ENTEROCOLITIS INFECTIOUS [None]
  - HAEMATOCHEZIA [None]
  - HAEMORRHOIDS [None]
  - NECK PAIN [None]
  - GASTROINTESTINAL HAEMORRHAGE [None]
  - BARRETT'S OESOPHAGUS [None]
  - ARTHROPATHY [None]
